FAERS Safety Report 11348477 (Version 1)
Quarter: 2015Q3

REPORT INFORMATION
  Report Type: Spontaneous
  Country: CN (occurrence: CN)
  Receive Date: 20150806
  Receipt Date: 20150806
  Transmission Date: 20151125
  Serious: Yes (Hospitalization)
  Sender: FDA-Public Use
  Company Number: CN-JNJFOC-20150723273

PATIENT
  Age: 60 Year
  Sex: Female

DRUGS (3)
  1. RISPERDAL [Suspect]
     Active Substance: RISPERIDONE
     Indication: DEPRESSION
     Route: 048
     Dates: start: 2007, end: 2012
  2. SEROXAT [Concomitant]
     Active Substance: PAROXETINE HYDROCHLORIDE
     Indication: DEPRESSION
     Route: 048
  3. PREDNISOLONE. [Concomitant]
     Active Substance: PREDNISOLONE
     Indication: SJOGREN^S SYNDROME
     Dates: start: 2004

REACTIONS (4)
  - Muscle tone disorder [Not Recovered/Not Resolved]
  - Product use issue [Unknown]
  - Tardive dyskinesia [Not Recovered/Not Resolved]
  - Gingival atrophy [Not Recovered/Not Resolved]
